FAERS Safety Report 9272972 (Version 2)
Quarter: 2013Q2

REPORT INFORMATION
  Report Type: Spontaneous
  Country: CH (occurrence: CH)
  Receive Date: 20130506
  Receipt Date: 20130604
  Transmission Date: 20140414
  Serious: Yes (Other)
  Sender: FDA-Public Use
  Company Number: CH-PFIZER INC-2012287474

PATIENT
  Sex: Male

DRUGS (3)
  1. PREGABALIN [Suspect]
     Indication: EUPHORIC MOOD
     Dosage: UP TO 7500 MG, DAILY
  2. ALCOHOL [Concomitant]
     Dosage: UNK
  3. CANNABIS [Concomitant]
     Dosage: UNK

REACTIONS (4)
  - Overdose [Unknown]
  - Drug abuse [Unknown]
  - Drug withdrawal syndrome [Unknown]
  - Autonomic nervous system imbalance [Unknown]
